FAERS Safety Report 5998628-0 (Version None)
Quarter: 2008Q4

REPORT INFORMATION
  Report Type: 
  Country: None (occurrence: None)
  Receive Date: 20081213
  Receipt Date: 20080714
  Transmission Date: 20090506
  Serious: No
  Sender: FDA-Public Use
  Company Number: US-AMGEN-KDL294357

PATIENT
  Sex: Female

DRUGS (2)
  1. ENBREL [Suspect]
     Indication: SYSTEMIC LUPUS ERYTHEMATOSUS
     Route: 058
     Dates: start: 20080416
  2. ENBREL [Suspect]
     Indication: SCLERODERMA

REACTIONS (13)
  - ABDOMINAL DISTENSION [None]
  - ABDOMINAL PAIN [None]
  - CHEST DISCOMFORT [None]
  - COMPLEMENT FACTOR C4 DECREASED [None]
  - COUGH [None]
  - DISTURBANCE IN ATTENTION [None]
  - DIZZINESS [None]
  - LYMPHADENOPATHY [None]
  - MEMORY IMPAIRMENT [None]
  - OLIGOMENORRHOEA [None]
  - RED BLOOD CELL COUNT DECREASED [None]
  - SKIN NODULE [None]
  - SOMNOLENCE [None]
